FAERS Safety Report 7942023-1 (Version None)
Quarter: 2011Q4

REPORT INFORMATION
  Report Type: 
  Country: None (occurrence: None)
  Receive Date: 20111114
  Receipt Date: 20110831
  Transmission Date: 20120403
  Serious: Yes (Other)
  Sender: FDA-Public Use
  Company Number: 2011029685

PATIENT
  Sex: Female

DRUGS (2)
  1. AVELOX [Suspect]
     Dates: start: 20110830
  2. HIZENTRA [Suspect]
     Indication: HYPOGAMMAGLOBULINAEMIA
     Dosage: (50 ML 1X/WEEK, INFUSED VIA 3 SITES SUBCUTANEOUS)
     Route: 058
     Dates: start: 20110428

REACTIONS (4)
  - ANAPHYLACTIC REACTION [None]
  - THROAT TIGHTNESS [None]
  - PRURITUS GENERALISED [None]
  - EYE SWELLING [None]
